FAERS Safety Report 6603328-X (Version None)
Quarter: 2010Q1

REPORT INFORMATION
  Report Type: 
  Country: None (occurrence: None)
  Receive Date: 20100226
  Receipt Date: 20090129
  Transmission Date: 20100710
  Serious: No
  Sender: FDA-Public Use
  Company Number: A0765899A

PATIENT
  Sex: Female

DRUGS (2)
  1. VALTREX [Suspect]
     Indication: GENITAL HERPES
     Dosage: 500MG PER DAY
     Route: 048
     Dates: start: 20090127
  2. BIRTH CONTROL [Concomitant]

REACTIONS (1)
  - BLISTER [None]
